FAERS Safety Report 6211798-4 (Version None)
Quarter: 2009Q2

REPORT INFORMATION
  Report Type: 
  Country: None (occurrence: None)
  Receive Date: 20090602
  Receipt Date: 20090526
  Transmission Date: 20091009
  Serious: Yes (Other)
  Sender: FDA-Public Use
  Company Number: BR-ROCHE-557739

PATIENT
  Age: 33 Year
  Sex: Male

DRUGS (2)
  1. RIVOTRIL [Suspect]
     Indication: PANIC ATTACK
     Dosage: OTHER INDICATION: ANXIETY
     Route: 048
     Dates: start: 20050101
  2. APRAZ [Concomitant]
     Indication: ANXIETY
     Dosage: OTHER INDICATION: DEPRESSION. DOSE REPORTED AS 0.25 MG
     Route: 048

REACTIONS (13)
  - ALOPECIA [None]
  - BURNING SENSATION [None]
  - CHEST PAIN [None]
  - DRUG INEFFECTIVE [None]
  - ERYTHEMA [None]
  - HEART RATE INCREASED [None]
  - INCREASED VISCOSITY OF BRONCHIAL SECRETION [None]
  - MITRAL VALVE PROLAPSE [None]
  - MUSCULAR WEAKNESS [None]
  - OCULAR HYPERAEMIA [None]
  - PRURITUS [None]
  - SALIVARY HYPERSECRETION [None]
  - TACHYCARDIA [None]
